FAERS Safety Report 21968261 (Version 1)
Quarter: 2023Q1

REPORT INFORMATION
  Report Type: Report from Study
  Country: CN (occurrence: CN)
  Receive Date: 20230208
  Receipt Date: 20230208
  Transmission Date: 20230417
  Serious: Yes (Hospitalization)
  Sender: FDA-Public Use
  Company Number: CN-BAYER-2023A011478

PATIENT
  Sex: Male

DRUGS (1)
  1. STIVARGA [Suspect]
     Active Substance: REGORAFENIB
     Indication: Hepatocellular carcinoma
     Dosage: 80 MG, QD
     Route: 048
     Dates: start: 20221207, end: 20230119

REACTIONS (3)
  - Cerebrovascular accident [Recovering/Resolving]
  - Blood pressure increased [Recovering/Resolving]
  - Off label use [None]

NARRATIVE: CASE EVENT DATE: 20221207
